FAERS Safety Report 5507338-5 (Version None)
Quarter: 2007Q4

REPORT INFORMATION
  Report Type: 
  Country: None (occurrence: None)
  Receive Date: 20071102
  Receipt Date: 20071018
  Transmission Date: 20080405
  Serious: Yes (Life-Threatening, Hospitalization, Other)
  Sender: FDA-Public Use
  Company Number: 163228ISR

PATIENT
  Age: 76 Year
  Sex: Female

DRUGS (2)
  1. TRIMETHOPRIM [Suspect]
     Dosage: (200 MG) ORAL
     Route: 048
     Dates: start: 20070815, end: 20070819
  2. PEGAPTANIB SODIUM [Suspect]
     Dosage: (300 MCG)
     Dates: start: 20070801

REACTIONS (2)
  - CONTUSION [None]
  - INTERNATIONAL NORMALISED RATIO INCREASED [None]
